FAERS Safety Report 8616040-2 (Version None)
Quarter: 2012Q3

REPORT INFORMATION
  Report Type: 
  Country: None (occurrence: None)
  Receive Date: 20120823
  Receipt Date: 20120816
  Transmission Date: 20120928
  Serious: Yes (Other)
  Sender: FDA-Public Use
  Company Number: CN-ROCHE-1105084

PATIENT
  Sex: Female
  Weight: 50 kg

DRUGS (3)
  1. MABTHERA [Suspect]
     Indication: B-CELL LYMPHOMA
     Route: 041
     Dates: start: 20100825
  2. PIRARUBICIN [Suspect]
     Indication: B-CELL LYMPHOMA
     Route: 041
     Dates: start: 20100825
  3. CYCLOPHOSPHAMIDE [Suspect]
     Indication: B-CELL LYMPHOMA
     Route: 041
     Dates: start: 20100825

REACTIONS (1)
  - HEPATIC FUNCTION ABNORMAL [None]
